FAERS Safety Report 20100449 (Version 3)
Quarter: 2022Q1

REPORT INFORMATION
  Report Type: Spontaneous
  Country: US (occurrence: US)
  Receive Date: 20211123
  Receipt Date: 20220111
  Transmission Date: 20220424
  Serious: No
  Sender: FDA-Public Use
  Company Number: US-SAGE-2021SAGE000110

PATIENT
  Sex: Female

DRUGS (8)
  1. ZULRESSO [Suspect]
     Active Substance: BREXANOLONE
     Indication: Perinatal depression
     Dosage: 30 MCG/KG/HR
     Route: 042
     Dates: start: 20211109, end: 20211109
  2. ZULRESSO [Suspect]
     Active Substance: BREXANOLONE
     Dosage: 60 MCG/KG/HR
     Route: 042
     Dates: start: 20211109, end: 20211109
  3. ZULRESSO [Suspect]
     Active Substance: BREXANOLONE
     Dosage: 60 MCG/KG/HR, NEW BAG
     Route: 042
     Dates: start: 20211109, end: 20211110
  4. ZULRESSO [Suspect]
     Active Substance: BREXANOLONE
     Dosage: 90 MCG/KG/HR, NEW BAG
     Route: 042
     Dates: start: 20211110, end: 20211110
  5. ZULRESSO [Suspect]
     Active Substance: BREXANOLONE
     Dosage: 90 MCG/KG/HR, NEW BAG
     Route: 042
     Dates: start: 20211110, end: 20211111
  6. ZULRESSO [Suspect]
     Active Substance: BREXANOLONE
     Dosage: 90 MCG/KG/HR,NEW BAG
     Route: 042
     Dates: start: 20211111, end: 20211111
  7. ZULRESSO [Suspect]
     Active Substance: BREXANOLONE
     Dosage: 60 MCG/KG/HR,NEW BAG
     Route: 042
     Dates: start: 20211111, end: 20211111
  8. ZULRESSO [Suspect]
     Active Substance: BREXANOLONE
     Dosage: 30 MCG/KG/HR
     Route: 042
     Dates: start: 20211111, end: 20211111

REACTIONS (1)
  - No adverse event [Unknown]
